FAERS Safety Report 8085213-2 (Version None)
Quarter: 2012Q1

REPORT INFORMATION
  Report Type: 
  Country: None (occurrence: None)
  Receive Date: 20120128
  Receipt Date: 20110330
  Transmission Date: 20120608
  Serious: No
  Sender: FDA-Public Use
  Company Number: US-ABBOTT-11P-163-0714957-00

PATIENT
  Age: 78 Year
  Sex: Female

DRUGS (6)
  1. VERAPAMIL [Concomitant]
     Indication: HYPERTENSION
  2. HUMIRA [Suspect]
     Indication: PRODUCT USED FOR UNKNOWN INDICATION
     Dates: start: 20100601
  3. LISINOPRIL [Concomitant]
     Indication: HYPERTENSION
  4. TOPROL-XL [Concomitant]
     Dates: start: 20110301
  5. TOPROL-XL [Concomitant]
     Indication: HYPERTENSION
     Dates: end: 20110301
  6. PRAVASTATIN [Concomitant]
     Indication: BLOOD CHOLESTEROL INCREASED

REACTIONS (1)
  - HYPERTENSION [None]
